FAERS Safety Report 9252372 (Version 1)
Quarter: 2013Q1

REPORT INFORMATION
  Report Type: Spontaneous
  Country: US (occurrence: None)
  Receive Date: 20130305
  Receipt Date: 20130305
  Transmission Date: 20140127
  Serious: Yes (Other)
  Sender: FDA-Public Use
  Company Number: 163-21880-12090626 (0)

PATIENT
  Age: 62 Year
  Sex: Female

DRUGS (10)
  1. REVLIMID [Suspect]
     Indication: PLASMA CELL MYELOMA
     Dosage: 25 MG, 21 IN 28 D, PO
     Route: 048
     Dates: start: 20120716
  2. CALCIUM + D (OS-CAL) [Concomitant]
  3. DEXAMETHASONE (DEXAMETHASONE) [Concomitant]
  4. FISH OIL (FISH OIL) [Concomitant]
  5. LIPITOR(ATORVASTATIN) [Concomitant]
  6. LISINOPRIL(LISINOPRIL) [Concomitant]
  7. VITAMINS [Concomitant]
  8. PROCRIT [Concomitant]
  9. VELCADE [Concomitant]
  10. ZYRTEC (CETIRIZINE HYDROCHLORIDE) [Concomitant]

REACTIONS (3)
  - Platelet count decreased [None]
  - Paraesthesia [None]
  - Gastrooesophageal reflux disease [None]
